FAERS Safety Report 7918442 (Version 4)
Quarter: 2013Q3

REPORT INFORMATION
  Report Type: Spontaneous
  Country: US (occurrence: US)
  Receive Date: 20110428
  Receipt Date: 20130912
  Transmission Date: 20140515
  Serious: Yes (Other)
  Sender: FDA-Public Use
  Company Number: US-ALLERGAN-1105408US

PATIENT
  Age: 60 Year
  Sex: Male

DRUGS (3)
  1. LUMIGAN 0.01% [Suspect]
     Indication: GLAUCOMA
     Dosage: 1 GTT, QHS
     Route: 047
     Dates: start: 20101209, end: 20110323
  2. LUMIGAN 0.01% [Suspect]
     Dosage: 1 GTT, QHS
     Dates: start: 20101109, end: 20110328
  3. LUMIGAN 0.01% [Suspect]
     Dosage: 1 GTT, QHS
     Dates: start: 20101208, end: 20110323

REACTIONS (2)
  - Ophthalmic herpes simplex [Recovering/Resolving]
  - Eye disorder [Unknown]
